FAERS Safety Report 8401139-6 (Version None)
Quarter: 2012Q2

REPORT INFORMATION
  Report Type: 
  Country: None (occurrence: None)
  Receive Date: 20120601
  Receipt Date: 20120522
  Transmission Date: 20120825
  Serious: Yes (Hospitalization)
  Sender: FDA-Public Use
  Company Number: FR-GE HEALTHCARE MEDICAL DIAGNOSTICS-VISP-NO-1205S-0237

PATIENT
  Sex: Male

DRUGS (7)
  1. RIFABUTIN [Suspect]
  2. ETHAMBUTOL HYDROCHLORIDE [Suspect]
  3. COLCHICINE [Suspect]
  4. TRAMADOL HCL [Suspect]
  5. NEFOPAM HYDROCHLORIDE (ACUPAN) [Suspect]
  6. VISIPAQUE [Suspect]
     Indication: PRODUCT USED FOR UNKNOWN INDICATION
     Route: 042
     Dates: start: 20111013, end: 20111013
  7. CLARITHROMYCIN [Suspect]

REACTIONS (7)
  - SKIN EXFOLIATION [None]
  - DRUG ERUPTION [None]
  - NEUTROPENIA [None]
  - LYMPHOPENIA [None]
  - PURPURA [None]
  - RASH GENERALISED [None]
  - PYREXIA [None]
